FAERS Safety Report 11087630 (Version 1)
Quarter: 2015Q2

REPORT INFORMATION
  Report Type: Report from Study
  Country: CA (occurrence: None)
  Receive Date: 20150430
  Receipt Date: 20150430
  Transmission Date: 20150821
  Serious: Yes (Other)
  Sender: FDA-Public Use
  Company Number: 2836924

PATIENT
  Age: 72 Year
  Sex: Male

DRUGS (1)
  1. ZOLEDRONIC ACID [Suspect]
     Active Substance: ZOLEDRONIC ACID
     Indication: PLASMA CELL MYELOMA
     Dosage: 3.3 MG MILLIGRAM(S) (UNKNOWN) INTRAVENOUS (NOT OTHTERWISE SPECIFIED)
     Route: 042

REACTIONS (5)
  - Incorrect dose administered [None]
  - Body temperature decreased [None]
  - Blood pressure systolic increased [None]
  - Malignant neoplasm progression [None]
  - Plasma cell myeloma [None]
